FAERS Safety Report 23158110 (Version 1)
Quarter: 2023Q4

REPORT INFORMATION
  Report Type: Spontaneous
  Country: FR (occurrence: FR)
  Receive Date: 20231108
  Receipt Date: 20231108
  Transmission Date: 20240109
  Serious: Yes (Hospitalization, Other)
  Sender: FDA-Public Use
  Company Number: FR-CHEPLA-2023013890

PATIENT
  Age: 27 Year
  Sex: Female

DRUGS (10)
  1. HYDROXYUREA [Suspect]
     Active Substance: HYDROXYUREA
     Indication: Sickle cell disease
     Dosage: DAILY DOSE: 1000 MILLIGRAM
  2. ETOPOSIDE [Suspect]
     Active Substance: ETOPOSIDE
     Indication: Acute myeloid leukaemia
     Dosage: SALVAGE CHEMOTHERAPY; FROM DAY 1 TO DAY 6 ?DAILY DOSE: 80 MILLIGRAM/M?
  3. MITOXANTRONE [Suspect]
     Active Substance: MITOXANTRONE HYDROCHLORIDE
     Indication: Acute myeloid leukaemia
     Dosage: FROM DAY 1 TO DAY 6; SALVAGE CHEMOTHERAPY?DAILY DOSE: 6 MILLIGRAM/M?
  4. CYTARABINE [Suspect]
     Active Substance: CYTARABINE
     Indication: Acute myeloid leukaemia
     Dosage: INTERMEDIATE DOSE?FROM DAY 1 TO DAY 6; SALVAGE CHEMOTHERAPY?DAILY DOSE: 1 GRAM PER SQUARE METRE
  5. THIOTEPA [Suspect]
     Active Substance: THIOTEPA
     Indication: Bone marrow conditioning regimen
  6. CYCLOPHOSPHAMIDE [Suspect]
     Active Substance: CYCLOPHOSPHAMIDE
     Indication: Prophylaxis against graft versus host disease
  7. EVEROLIMUS [Suspect]
     Active Substance: EVEROLIMUS
     Indication: Prophylaxis against graft versus host disease
  8. VYXEOS [Suspect]
     Active Substance: CYTARABINE\DAUNORUBICIN
     Dosage: DAY 1,3 AND 5
  9. BUSULFAN [Suspect]
     Active Substance: BUSULFAN
  10. FLUDARABINE [Suspect]
     Active Substance: FLUDARABINE PHOSPHATE

REACTIONS (9)
  - Myelodysplastic syndrome [Unknown]
  - Acute myeloid leukaemia [Unknown]
  - Cellulitis [Unknown]
  - Pericarditis [Unknown]
  - Posterior reversible encephalopathy syndrome [Unknown]
  - Septic shock [Unknown]
  - Pneumonia klebsiella [Unknown]
  - Bronchopulmonary aspergillosis [Unknown]
  - Hepatosplenic candidiasis [Unknown]
